FAERS Safety Report 26187093 (Version 1)
Quarter: 2025Q4

REPORT INFORMATION
  Report Type: Spontaneous
  Country: EU (occurrence: EU)
  Receive Date: 20251222
  Receipt Date: 20251222
  Transmission Date: 20260117
  Serious: Yes (Hospitalization)
  Sender: ACCORD
  Company Number: None

PATIENT
  Age: 47 Year
  Sex: Male
  Weight: 85 kg

DRUGS (2)
  1. GEMCITABINE [Suspect]
     Active Substance: GEMCITABINE
     Indication: Dedifferentiated liposarcoma
     Dosage: STRENGTH: 1000 MG
     Dates: start: 20250724, end: 20250724
  2. DACARBAZINE [Suspect]
     Active Substance: DACARBAZINE
     Indication: Dedifferentiated liposarcoma
     Dosage: STRENGTH: 100 MG
     Dates: start: 20250724, end: 20250724

REACTIONS (1)
  - Renal tubular necrosis [Recovering/Resolving]

NARRATIVE: CASE EVENT DATE: 20250820
